FAERS Safety Report 7408504-4 (Version None)
Quarter: 2011Q2

REPORT INFORMATION
  Report Type: 
  Country: None (occurrence: None)
  Receive Date: 20110401
  Receipt Date: 20110321
  Transmission Date: 20111010
  Serious: Yes (Other)
  Sender: FDA-Public Use
  Company Number: DSU-2011-02054

PATIENT
  Sex: Male

DRUGS (2)
  1. BENICAR [Suspect]
     Indication: BLOOD PRESSURE ABNORMAL
     Dosage: PER ORAL
     Route: 048
  2. JALYN [Suspect]
     Indication: BENIGN PROSTATIC HYPERPLASIA
     Dosage: 1 DOSAGE FORMS (1 DOSAGE FORMS, QD), PER ORAL
     Route: 048

REACTIONS (3)
  - SYNCOPE [None]
  - LOSS OF CONSCIOUSNESS [None]
  - BLOOD CREATININE INCREASED [None]
